FAERS Safety Report 5259948-0 (Version None)
Quarter: 2007Q1

REPORT INFORMATION
  Report Type: 
  Country: None (occurrence: None)
  Receive Date: 20070309
  Receipt Date: 20070305
  Transmission Date: 20070707
  Serious: Yes (Hospitalization)
  Sender: FDA-Public Use
  Company Number: FR-GLAXOSMITHKLINE-B0460542A

PATIENT
  Age: 85 Year
  Sex: Male

DRUGS (14)
  1. ARIXTRA [Suspect]
     Indication: DRUG USE FOR UNKNOWN INDICATION
     Dosage: 1INJ PER DAY
     Route: 058
     Dates: end: 20070131
  2. PLAVIX [Suspect]
     Dosage: 1UNIT PER DAY
     Route: 048
     Dates: end: 20070207
  3. KARDEGIC [Concomitant]
     Dosage: 75MG PER DAY
     Route: 048
  4. MOXIFLOXACIN HYDROCHLORIDE [Concomitant]
     Route: 048
     Dates: start: 20070123, end: 20070130
  5. ZOCOR [Concomitant]
  6. TAREG [Concomitant]
  7. SECTRAL [Concomitant]
  8. RIVOTRIL [Concomitant]
  9. INIPOMP [Concomitant]
  10. NEURONTIN [Concomitant]
  11. DAFALGAN [Concomitant]
  12. MODOPAR [Concomitant]
  13. LANTUS [Concomitant]
  14. NOVORAPID [Concomitant]

REACTIONS (2)
  - CEREBRAL HAEMATOMA [None]
  - HAEMATOMA [None]
